FAERS Safety Report 12449586 (Version 1)
Quarter: 2016Q2

REPORT INFORMATION
  Report Type: Spontaneous
  Country: DK (occurrence: DK)
  Receive Date: 20160609
  Receipt Date: 20160609
  Transmission Date: 20160815
  Serious: Yes (Disabling)
  Sender: FDA-Public Use
  Company Number: DK-ABBVIE-15K-044-1349836-00

PATIENT
  Sex: Male
  Weight: 95 kg

DRUGS (5)
  1. HUMIRA [Suspect]
     Active Substance: ADALIMUMAB
     Indication: ANKYLOSING SPONDYLITIS
     Route: 058
     Dates: start: 20120131
  2. KEPPRA [Concomitant]
     Active Substance: LEVETIRACETAM
     Indication: EPILEPSY
     Route: 048
     Dates: start: 20130116
  3. HUMIRA [Suspect]
     Active Substance: ADALIMUMAB
     Route: 058
     Dates: start: 20130108
  4. HUMIRA [Suspect]
     Active Substance: ADALIMUMAB
     Route: 058
     Dates: start: 201304
  5. HUMIRA [Suspect]
     Active Substance: ADALIMUMAB
     Route: 058
     Dates: end: 20140928

REACTIONS (14)
  - Rash pustular [Recovering/Resolving]
  - Nail psoriasis [Not Recovered/Not Resolved]
  - Psoriasis [Recovering/Resolving]
  - Eczema [Not Recovered/Not Resolved]
  - White blood cell count increased [Recovered/Resolved]
  - Monocyte count increased [Recovered/Resolved]
  - Basophil count increased [Recovered/Resolved]
  - Skin exfoliation [Recovering/Resolving]
  - Musculoskeletal stiffness [Unknown]
  - Blood alkaline phosphatase increased [Recovered/Resolved]
  - Anogenital warts [Unknown]
  - Skin hypertrophy [Not Recovered/Not Resolved]
  - Pustular psoriasis [Recovering/Resolving]
  - Eosinophil count increased [Recovered/Resolved]

NARRATIVE: CASE EVENT DATE: 2013
